FAERS Safety Report 12951247 (Version 2)
Quarter: 2016Q4

REPORT INFORMATION
  Report Type: Report from Study
  Country: MX (occurrence: MX)
  Receive Date: 20161117
  Receipt Date: 20161121
  Transmission Date: 20170207
  Serious: Yes (Other)
  Sender: FDA-Public Use
  Company Number: PHHY2016MX156806

PATIENT
  Sex: Male
  Weight: 60 kg

DRUGS (4)
  1. ULTIBRO BREEZHALER [Suspect]
     Active Substance: GLYCOPYRRONIUM\INDACATEROL
     Indication: CYSTIC FIBROSIS
     Dosage: 1 DF, BID (1 IN THE MORNING AND 1 AT NIGHT) 6 YEARS AGO
     Route: 055
  2. SEEBRI BREEZHALER [Suspect]
     Active Substance: GLYCOPYRROLATE
     Indication: CYSTIC FIBROSIS
     Dosage: 2 DF (50 MCG), UNK
     Route: 055
  3. ONBREZ BREEZHALER [Suspect]
     Active Substance: INDACATEROL
     Indication: CYSTIC FIBROSIS
     Dosage: 2 DF (150 MCG), BID (1 IN THE MORNING AND 1 AT NIGHT)
     Route: 065
  4. MIFLONIDE [Suspect]
     Active Substance: BUDESONIDE
     Indication: CYSTIC FIBROSIS
     Dosage: 400 UG, UNK
     Route: 055

REACTIONS (5)
  - Spinal fracture [Not Recovered/Not Resolved]
  - Inappropriate schedule of drug administration [Not Recovered/Not Resolved]
  - Product use issue [Not Recovered/Not Resolved]
  - Accident [Not Recovered/Not Resolved]
  - Back pain [Not Recovered/Not Resolved]
